FAERS Safety Report 8016099-X (Version None)
Quarter: 2011Q4

REPORT INFORMATION
  Report Type: 
  Country: None (occurrence: None)
  Receive Date: 20111230
  Receipt Date: 20111221
  Transmission Date: 20120403
  Serious: Yes (Hospitalization)
  Sender: FDA-Public Use
  Company Number: DE-BRISTOL-MYERS SQUIBB COMPANY-16321408

PATIENT
  Age: 55 Year
  Sex: Male
  Weight: 45 kg

DRUGS (9)
  1. OXYCODONE HYDROCHLORIDE [Concomitant]
  2. DOCETAXEL [Suspect]
     Indication: MALIGNANT RESPIRATORY TRACT NEOPLASM
     Dosage: DOCETAXEL IV INFUSION 75MG/M2 D1/WK4,WK7 LAST DOSE ON 29SEP2011
     Route: 042
     Dates: start: 20110811, end: 20110929
  3. RAMIPRIL [Concomitant]
     Dosage: 2.5 UNITS NOS
     Route: 048
  4. PANTOPRAZOLE SODIUM [Concomitant]
     Route: 048
  5. NOVALGIN [Concomitant]
     Dosage: 40 GTT 4 IN 1 D 4 DROPS(TOTAL:160 GTT)
     Route: 048
  6. CETUXIMAB [Suspect]
     Indication: MALIGNANT RESPIRATORY TRACT NEOPLASM
     Dosage: 11AUG2011(400MG/M2 ONCE) AUG2011-04NOV2011(3MONTHS):250MG/M2 1 IN 1 WK LAST DOSE ON 04NOV2011.
     Route: 042
     Dates: start: 20110811
  7. ACETYLSALICYLIC ACID SRT [Concomitant]
     Route: 048
  8. CISPLATIN [Suspect]
     Indication: MALIGNANT RESPIRATORY TRACT NEOPLASM
     Dosage: 75MG/M2 DAY 1 WEEK 4, WEEK 7 LAST DOSE ON 29SEP2011
     Route: 042
     Dates: start: 20110811, end: 20110929
  9. AMPHOTERICIN B [Concomitant]
     Route: 048

REACTIONS (3)
  - MUCOSAL INFLAMMATION [None]
  - DYSPHAGIA [None]
  - WEIGHT DECREASED [None]
